FAERS Safety Report 7712269-6 (Version None)
Quarter: 2011Q3

REPORT INFORMATION
  Report Type: 
  Country: None (occurrence: None)
  Receive Date: 20110826
  Receipt Date: 20110816
  Transmission Date: 20111222
  Serious: Yes (Other)
  Sender: FDA-Public Use
  Company Number: US-PERRIGO-11US006672

PATIENT
  Sex: Female
  Weight: 53.061 kg

DRUGS (6)
  1. RID MOUSSE [Suspect]
     Indication: PRODUCT USED FOR UNKNOWN INDICATION
     Dosage: UNK
     Route: 065
     Dates: start: 20110815, end: 20110815
  2. PRISTIQ [Concomitant]
     Indication: DEPRESSION
     Dosage: 50 MG, QD
     Route: 048
     Dates: start: 20080101
  3. NEBIVOLOL HCL [Concomitant]
     Indication: HYPERTENSION
     Dosage: 10 MG, QD
     Route: 048
     Dates: start: 20110701
  4. ACTONEL [Concomitant]
     Indication: OSTEOPOROSIS
     Dosage: 35 MG, QD
     Route: 048
     Dates: start: 20010101
  5. SPIRIVA [Concomitant]
     Indication: EMPHYSEMA
     Dosage: 1 PUFF DAILY
     Route: 055
     Dates: start: 20030101
  6. UNIVASC [Concomitant]
     Indication: HYPERTENSION
     Dosage: 15 MG, QD
     Route: 048
     Dates: start: 20050101

REACTIONS (9)
  - EYE PAIN [None]
  - LACRIMATION INCREASED [None]
  - CHEMICAL EYE INJURY [None]
  - VISUAL ACUITY REDUCED [None]
  - BLOOD PRESSURE INCREASED [None]
  - OCULAR HYPERAEMIA [None]
  - EYE SWELLING [None]
  - EYE DISCHARGE [None]
  - ACCIDENTAL EXPOSURE [None]
